FAERS Safety Report 8374344-5 (Version None)
Quarter: 2012Q2

REPORT INFORMATION
  Report Type: 
  Country: None (occurrence: None)
  Receive Date: 20120521
  Receipt Date: 20120514
  Transmission Date: 20120825
  Serious: Yes (Hospitalization, Other)
  Sender: FDA-Public Use
  Company Number: US-ASTRAZENECA-2010SE50677

PATIENT
  Age: 45 Year
  Sex: Female
  Weight: 77.1 kg

DRUGS (30)
  1. SEROQUEL [Suspect]
     Route: 048
  2. SEROQUEL [Suspect]
     Route: 048
  3. SEROQUEL [Suspect]
     Route: 048
     Dates: start: 20100101, end: 20101012
  4. SEROQUEL [Suspect]
     Route: 048
     Dates: end: 20101214
  5. SEROQUEL [Suspect]
     Route: 048
  6. SEROQUEL [Suspect]
     Indication: BIPOLAR DISORDER
     Route: 048
     Dates: start: 20000101
  7. SEROQUEL [Suspect]
     Route: 048
  8. SEROQUEL [Suspect]
     Route: 048
  9. SEROQUEL [Suspect]
     Route: 048
     Dates: start: 20100101, end: 20101012
  10. SEROQUEL [Suspect]
     Route: 048
     Dates: start: 20100101, end: 20101012
  11. SEROQUEL [Suspect]
     Route: 048
  12. SEROQUEL [Suspect]
     Route: 048
  13. SEROQUEL [Suspect]
     Route: 048
  14. SEROQUEL [Suspect]
     Route: 048
  15. SEROQUEL [Suspect]
     Route: 048
  16. SEROQUEL [Suspect]
     Indication: MAJOR DEPRESSION
     Route: 048
     Dates: start: 20000101
  17. SEROQUEL [Suspect]
     Indication: ANXIETY
     Route: 048
     Dates: start: 20000101
  18. SEROQUEL [Suspect]
     Route: 048
     Dates: end: 20101214
  19. SEROQUEL [Suspect]
     Indication: SLEEP DISORDER
     Route: 048
     Dates: start: 20000101
  20. SEROQUEL [Suspect]
     Route: 048
  21. SEROQUEL [Suspect]
     Route: 048
  22. SEROQUEL [Suspect]
     Route: 048
     Dates: end: 20101214
  23. SEROQUEL [Suspect]
     Route: 048
  24. SEROQUEL [Suspect]
     Route: 048
  25. SEROQUEL [Suspect]
     Route: 048
  26. SEROQUEL [Suspect]
     Route: 048
     Dates: start: 20100101, end: 20101012
  27. SEROQUEL [Suspect]
     Route: 048
     Dates: end: 20101214
  28. SEROQUEL [Suspect]
     Route: 048
  29. PROZAC [Concomitant]
  30. XANAX [Concomitant]
     Dosage: HS

REACTIONS (21)
  - VOMITING [None]
  - DYSPNOEA [None]
  - ACTIVITIES OF DAILY LIVING IMPAIRED [None]
  - VISION BLURRED [None]
  - DIZZINESS [None]
  - TREMOR [None]
  - INTENTIONAL DRUG MISUSE [None]
  - CONVULSION [None]
  - FEELING ABNORMAL [None]
  - MATERNAL EXPOSURE TIMING UNSPECIFIED [None]
  - FALL [None]
  - NAUSEA [None]
  - EMOTIONAL DISORDER [None]
  - HEART RATE INCREASED [None]
  - CERVICAL INCOMPETENCE [None]
  - MATERNAL EXPOSURE DURING PREGNANCY [None]
  - HEADACHE [None]
  - DEPRESSION [None]
  - INSOMNIA [None]
  - MALAISE [None]
  - OFF LABEL USE [None]
